FAERS Safety Report 21441835 (Version 1)
Quarter: 2022Q4

REPORT INFORMATION
  Report Type: Spontaneous
  Country: US (occurrence: US)
  Receive Date: 20221011
  Receipt Date: 20221011
  Transmission Date: 20230113
  Serious: No
  Sender: FDA-Public Use
  Company Number: US-IDORSIA-000485-2022-US

PATIENT
  Age: 65 Year
  Sex: Male

DRUGS (2)
  1. QUVIVIQ [Suspect]
     Active Substance: DARIDOREXANT
     Indication: Product used for unknown indication
     Dosage: 50 MG, QD
     Route: 048
     Dates: start: 20220506, end: 202205
  2. QUVIVIQ [Suspect]
     Active Substance: DARIDOREXANT
     Dosage: 37.5 MG, QD
     Route: 048
     Dates: start: 202205

REACTIONS (2)
  - Dizziness [Recovered/Resolved]
  - Product prescribing error [Unknown]

NARRATIVE: CASE EVENT DATE: 20220501
